FAERS Safety Report 4443190-7 (Version None)
Quarter: 2004Q3

REPORT INFORMATION
  Report Type: 
  Country: None (occurrence: None)
  Receive Date: 20040903
  Receipt Date: 20040701
  Transmission Date: 20050211
  Serious: Yes (Other)
  Sender: FDA-Public Use
  Company Number: 2004UW13658

PATIENT
  Age: 65 Year
  Sex: Male
  Weight: 90.7194 kg

DRUGS (5)
  1. CRESTOR [Suspect]
     Indication: BLOOD CHOLESTEROL INCREASED
     Dosage: 10 MG DAILY PO
     Route: 048
     Dates: start: 20040629
  2. ATENOLOL [Concomitant]
  3. ACIPHEX [Concomitant]
  4. ZYRTEC [Concomitant]
  5. VIAGRA [Concomitant]

REACTIONS (1)
  - STOMACH DISCOMFORT [None]
